FAERS Safety Report 5154839-8 (Version None)
Quarter: 2006Q4

REPORT INFORMATION
  Report Type: 
  Country: None (occurrence: None)
  Receive Date: 20061121
  Receipt Date: 20061113
  Transmission Date: 20070319
  Serious: Yes (Death, Hospitalization)
  Sender: FDA-Public Use
  Company Number: US-JNJFOC-20060905144

PATIENT
  Age: 34 Year
  Sex: Male
  Weight: 90.72 kg

DRUGS (11)
  1. RISPERDAL CONSTA [Suspect]
     Indication: MILD MENTAL RETARDATION
     Route: 030
  2. RISPERDAL CONSTA [Suspect]
     Indication: PSYCHOTIC DISORDER
     Route: 030
  3. RISPERDAL CONSTA [Suspect]
     Indication: SCHIZOPHRENIA
     Route: 030
  4. RISPERDAL [Suspect]
     Indication: MILD MENTAL RETARDATION
     Route: 048
  5. RISPERDAL [Suspect]
     Indication: PSYCHOTIC DISORDER
     Route: 048
  6. RISPERDAL [Suspect]
     Indication: SCHIZOPHRENIA
     Route: 048
  7. CLARITIN [Concomitant]
     Indication: MULTIPLE ALLERGIES
  8. COGENTIN [Concomitant]
     Indication: EXTRAPYRAMIDAL DISORDER
  9. VISTARIL [Concomitant]
  10. LITHIUM CARBONATE [Concomitant]
     Indication: SCHIZOPHRENIA
  11. DILTIAZEM HCL [Concomitant]
     Indication: HYPERTENSION

REACTIONS (10)
  - AKATHISIA [None]
  - ANXIETY [None]
  - DEATH [None]
  - DYSTONIA [None]
  - EXTRAPYRAMIDAL DISORDER [None]
  - GAIT DISTURBANCE [None]
  - PANIC ATTACK [None]
  - PARANOIA [None]
  - THROAT TIGHTNESS [None]
  - WEIGHT DECREASED [None]
